FAERS Safety Report 9675983 (Version 1)
Quarter: 2013Q4

REPORT INFORMATION
  Report Type: Spontaneous
  Country: HU (occurrence: HU)
  Receive Date: 20131107
  Receipt Date: 20131107
  Transmission Date: 20140711
  Serious: Yes (Death, Hospitalization)
  Sender: FDA-Public Use
  Company Number: HU-WATSON-2013-19609

PATIENT
  Age: 56 Year
  Sex: Male

DRUGS (1)
  1. POTASSIUM CHLORIDE EXTENDED-RELEASE (WATSON LABORATORIES) [Suspect]
     Indication: OVERDOSE
     Dosage: }50 G, SINGLE
     Route: 065

REACTIONS (6)
  - Hyperkalaemia [Fatal]
  - Ventricular fibrillation [Fatal]
  - Pulseless electrical activity [Fatal]
  - Electrocardiogram ST segment elevation [Fatal]
  - Electrocardiogram QRS complex prolonged [Fatal]
  - Overdose [Fatal]
